FAERS Safety Report 9408670 (Version 1)
Quarter: 2013Q3

REPORT INFORMATION
  Report Type: Spontaneous
  Country: FR (occurrence: FR)
  Receive Date: 20130712
  Receipt Date: 20130712
  Transmission Date: 20140515
  Serious: Yes (Death, Other)
  Sender: FDA-Public Use
  Company Number: FR-PFIZER INC-2013203910

PATIENT
  Age: 63 Year
  Sex: Male

DRUGS (3)
  1. METHYLPREDNISOLONE SODIUM SUCCINATE [Suspect]
     Indication: GRANULOMATOSIS WITH POLYANGIITIS
     Dosage: 725 MG, DAY
  2. CYCLOPHOSPHAMIDE [Suspect]
     Indication: GRANULOMATOSIS WITH POLYANGIITIS
     Dosage: EVERY 3 WEEKS (13 INFUSIONS), CUMULATIVE DOSE 13 G
     Route: 042
     Dates: end: 199311
  3. PREDNISONE [Suspect]
     Indication: GRANULOMATOSIS WITH POLYANGIITIS
     Dosage: 14 MG, DAY
     Dates: end: 1994

REACTIONS (1)
  - Encephalopathy [Fatal]
